FAERS Safety Report 20575280 (Version 3)
Quarter: 2025Q3

REPORT INFORMATION
  Report Type: Spontaneous
  Country: EU (occurrence: EU)
  Receive Date: 20220310
  Receipt Date: 20250702
  Transmission Date: 20251021
  Serious: Yes (Other)
  Sender: NOVO NORDISK
  Company Number: EU-NOVOPROD-896463

PATIENT
  Age: 82 Year
  Sex: Female
  Weight: 83 kg

DRUGS (2)
  1. OZEMPIC [Suspect]
     Active Substance: SEMAGLUTIDE
     Indication: Weight control
     Route: 065
  2. OZEMPIC [Suspect]
     Active Substance: SEMAGLUTIDE
     Indication: Weight control
     Route: 065

REACTIONS (2)
  - Hepatic lesion [Unknown]
  - Off label use [Unknown]

NARRATIVE: CASE EVENT DATE: 20220112
